FAERS Safety Report 8824922 (Version 1)
Quarter: 2012Q4

REPORT INFORMATION
  Report Type: 
  Country: US (occurrence: US)
  Receive Date: 20121004
  Receipt Date: 20121004
  Transmission Date: 20130627
  Serious: Yes (Death, Hospitalization, Other)
  Sender: FDA-Public Use
  Company Number: US-ROCHE-1130704

PATIENT
  Sex: Female

DRUGS (1)
  1. RITUXAN [Suspect]
     Indication: CHRONIC LYMPHOCYTIC LEUKAEMIA
     Route: 065
     Dates: start: 20001109

REACTIONS (6)
  - Death [Fatal]
  - Syncope [Unknown]
  - Abdominal pain [Unknown]
  - Splenomegaly [Not Recovered/Not Resolved]
  - Musculoskeletal pain [Unknown]
  - Dizziness [Unknown]
